FAERS Safety Report 15532184 (Version 6)
Quarter: 2018Q4

REPORT INFORMATION
  Report Type: Spontaneous
  Country: IT (occurrence: IT)
  Receive Date: 20181019
  Receipt Date: 20181205
  Transmission Date: 20190205
  Serious: Yes (Other)
  Sender: FDA-Public Use
  Company Number: IT-009507513-1810ITA008455

PATIENT
  Age: 33 Year
  Sex: Female

DRUGS (2)
  1. MONTELUKAST SODIUM. [Suspect]
     Active Substance: MONTELUKAST SODIUM
     Indication: ASTHMA
     Dosage: 10 MG/DAY, 1 TABLET
     Route: 048
     Dates: start: 201504, end: 2017
  2. THERAPY UNSPECIFIED [Suspect]
     Active Substance: UNSPECIFIED INGREDIENT

REACTIONS (2)
  - Haemorrhage subcutaneous [Recovered/Resolved]
  - Platelet dysfunction [Recovered/Resolved]

NARRATIVE: CASE EVENT DATE: 2017
